APPROVED DRUG PRODUCT: DECADRON
Active Ingredient: DEXAMETHASONE
Strength: 6MG **Federal Register determination that product was not discontinued or withdrawn for safety or effectiveness reasons**
Dosage Form/Route: TABLET;ORAL
Application: N011664 | Product #006
Applicant: MERCK AND CO INC
Approved: Jul 30, 1982 | RLD: Yes | RS: No | Type: DISCN